FAERS Safety Report 7218662-2 (Version None)
Quarter: 2011Q1

REPORT INFORMATION
  Report Type: 
  Country: None (occurrence: None)
  Receive Date: 20110110
  Receipt Date: 20100826
  Transmission Date: 20110831
  Serious: No
  Sender: FDA-Public Use
  Company Number: US-ABBOTT-10P-163-0666923-00

PATIENT
  Age: 56 Year
  Sex: Male

DRUGS (7)
  1. ASPIRIN [Concomitant]
     Indication: NECK PAIN
  2. TYLENOL [Concomitant]
     Indication: HEADACHE
  3. HYDROCODONE BITARTRATE [Suspect]
     Indication: NECK PAIN
  4. ASPIRIN [Concomitant]
     Indication: HEADACHE
  5. APRISO 6MP [Concomitant]
     Indication: COLITIS ULCERATIVE
  6. TYLENOL [Concomitant]
     Indication: NECK PAIN
  7. HYDROCODONE BITARTRATE [Suspect]
     Indication: HEADACHE
     Dates: start: 20100820

REACTIONS (1)
  - THERAPEUTIC RESPONSE DECREASED [None]
